FAERS Safety Report 12928489 (Version 2)
Quarter: 2016Q4

REPORT INFORMATION
  Report Type: Spontaneous
  Country: DE (occurrence: DE)
  Receive Date: 20161110
  Receipt Date: 20161228
  Transmission Date: 20170207
  Serious: Yes (Disabling)
  Sender: FDA-Public Use
  Company Number: DE-SUN PHARMACEUTICAL INDUSTRIES LTD-2016RR-127479

PATIENT
  Sex: Female
  Weight: 95 kg

DRUGS (3)
  1. CEFUROX BASICS 250 MG TABLETTEN [Suspect]
     Active Substance: CEFUROXIME
     Indication: NEPHROLITHIASIS
     Dosage: BID (1-0-1)
     Route: 065
     Dates: start: 20140516
  2. CEFUROX BASICS 250 MG TABLETTEN [Suspect]
     Active Substance: CEFUROXIME
     Dosage: QD (0-0-1)
     Route: 065
  3. NOVAMINSULFONE [Concomitant]
     Indication: PRODUCT USED FOR UNKNOWN INDICATION
     Route: 065

REACTIONS (3)
  - Disturbance in attention [Not Recovered/Not Resolved]
  - Fatigue [Not Recovered/Not Resolved]
  - Pain in extremity [Not Recovered/Not Resolved]
